FAERS Safety Report 8129568-9 (Version None)
Quarter: 2012Q1

REPORT INFORMATION
  Report Type: 
  Country: None (occurrence: None)
  Receive Date: 20120210
  Receipt Date: 20120201
  Transmission Date: 20120608
  Serious: Yes (Death)
  Sender: FDA-Public Use
  Company Number: US-GLAXOSMITHKLINE-A0894669A

PATIENT
  Age: 87 Year
  Sex: Male

DRUGS (2)
  1. CORTICOSTEROIDS [Concomitant]
  2. PROMACTA [Suspect]
     Indication: IDIOPATHIC THROMBOCYTOPENIC PURPURA
     Dosage: 25MG PER DAY
     Route: 048
     Dates: start: 20100716, end: 20100823

REACTIONS (6)
  - PALLOR [None]
  - DEATH [None]
  - ANAEMIA [None]
  - FATIGUE [None]
  - THROMBOCYTOPENIA [None]
  - MYELODYSPLASTIC SYNDROME [None]
